FAERS Safety Report 6413147-5 (Version None)
Quarter: 2009Q4

REPORT INFORMATION
  Report Type: 
  Country: None (occurrence: None)
  Receive Date: 20091022
  Receipt Date: 20091022
  Transmission Date: 20100525
  Serious: No
  Sender: FDA-Public Use
  Company Number: None

PATIENT
  Sex: Male
  Weight: 51.2565 kg

DRUGS (3)
  1. PROMETHAZINE [Suspect]
     Indication: MUSCLE SPASMS
     Dosage: ONE BY MOUTH EVERY 6 HOURS
     Route: 048
     Dates: start: 20091004
  2. PROMETHAZINE [Suspect]
     Indication: MUSCLE SPASMS
     Dosage: ONE BY MOUTH EVERY 6 HOURS
     Route: 048
     Dates: start: 20091005
  3. PROMETHAZINE [Suspect]
     Indication: MUSCLE SPASMS
     Dosage: ONE BY MOUTH EVERY 6 HOURS
     Route: 048
     Dates: start: 20091006

REACTIONS (1)
  - CONSTIPATION [None]
